FAERS Safety Report 7546925-X (Version None)
Quarter: 2011Q2

REPORT INFORMATION
  Report Type: 
  Country: None (occurrence: None)
  Receive Date: 20110614
  Receipt Date: 20110610
  Transmission Date: 20111010
  Serious: Yes (Disabling)
  Sender: FDA-Public Use
  Company Number: FR-MERCK-1106FRA00040

PATIENT
  Age: 58 Year
  Sex: Female

DRUGS (1)
  1. FOSAMAX PLUS D [Suspect]
     Indication: OSTEOPOROSIS POSTMENOPAUSAL
     Route: 048
     Dates: start: 20100408

REACTIONS (7)
  - FATIGUE [None]
  - ASTHENIA [None]
  - AFFECTIVE DISORDER [None]
  - DEPRESSION [None]
  - DEPENDENCE [None]
  - PAIN [None]
  - MOVEMENT DISORDER [None]
